FAERS Safety Report 9396808 (Version 1)
Quarter: 2013Q3

REPORT INFORMATION
  Report Type: Spontaneous
  Country: US (occurrence: US)
  Receive Date: 20130712
  Receipt Date: 20130712
  Transmission Date: 20140515
  Serious: Yes (Other)
  Sender: FDA-Public Use
  Company Number: US-BRISTOL-MYERS SQUIBB COMPANY-19069418

PATIENT
  Sex: Female

DRUGS (1)
  1. KENALOG-40 INJ [Suspect]
     Dosage: 3 TIMES
     Dates: start: 201301

REACTIONS (13)
  - Fibromyalgia [Unknown]
  - Migraine [Unknown]
  - Neck pain [Unknown]
  - Visual acuity reduced [Unknown]
  - Alopecia [Unknown]
  - Muscle spasms [Unknown]
  - Skin atrophy [Unknown]
  - Gastrointestinal disorder [Unknown]
  - Heart rate increased [Unknown]
  - Hyperhidrosis [Unknown]
  - Contusion [Unknown]
  - Off label use [Unknown]
  - Abdominal distension [Unknown]
